FAERS Safety Report 9791981 (Version 1)
Quarter: 2014Q1

REPORT INFORMATION
  Report Type: Report from Study
  Country: US (occurrence: US)
  Receive Date: 20140102
  Receipt Date: 20140102
  Transmission Date: 20141002
  Serious: Yes (Death)
  Sender: FDA-Public Use
  Company Number: US-UCBSA-107457

PATIENT
  Age: 0 None
  Sex: Female

DRUGS (3)
  1. KEPPRA [Suspect]
     Indication: EPILEPSY
     Dosage: DOSE: 3000 MG
     Route: 064
     Dates: start: 201301, end: 201304
  2. KEPPRA [Suspect]
     Indication: EPILEPSY
     Dosage: DOSE: 3375 MG
     Route: 064
     Dates: start: 201304, end: 20130725
  3. LEVOTHYROXINE [Concomitant]
     Indication: HYPOTHYROIDISM
     Route: 064
     Dates: start: 201301, end: 20130725

REACTIONS (2)
  - Premature baby [Fatal]
  - Foetal exposure during pregnancy [Recovered/Resolved]
